FAERS Safety Report 8805569 (Version 9)
Quarter: 2013Q1

REPORT INFORMATION
  Report Type: Report from Study
  Country: CA (occurrence: CA)
  Receive Date: 20120924
  Receipt Date: 20130208
  Transmission Date: 20140127
  Serious: Yes (Hospitalization, Other)
  Sender: FDA-Public Use
  Company Number: CA-ROCHE-1133785

PATIENT
  Age: 61 Year
  Sex: Male
  Weight: 122.5 kg

DRUGS (6)
  1. RITUXAN [Suspect]
     Indication: CHRONIC LYMPHOCYTIC LEUKAEMIA
     Route: 042
     Dates: start: 20120918
  2. RITUXAN [Suspect]
     Route: 042
     Dates: start: 20121022
  3. BENDAMUSTINE [Suspect]
     Indication: CHRONIC LYMPHOCYTIC LEUKAEMIA
     Route: 042
     Dates: start: 20120918
  4. DIPHENHYDRAMINE HCL [Concomitant]
     Dosage: ONCE
     Route: 048
     Dates: start: 20120918, end: 20120918
  5. ACETAMINOPHEN [Concomitant]
     Dosage: ONCE
     Route: 048
     Dates: start: 20120918, end: 20120918
  6. METHYLPREDNISOLONE [Concomitant]
     Dosage: ONCE
     Route: 042
     Dates: start: 20120918, end: 20120918

REACTIONS (10)
  - Cellulitis [Not Recovered/Not Resolved]
  - Febrile neutropenia [Unknown]
  - Pyrexia [Unknown]
  - Infusion related reaction [Unknown]
  - Blood glucose increased [Unknown]
  - Depressed level of consciousness [Unknown]
  - Chills [Recovered/Resolved]
  - Infusion related reaction [Recovered/Resolved]
  - Nasopharyngitis [Not Recovered/Not Resolved]
  - Influenza [Unknown]
